FAERS Safety Report 19361213 (Version 3)
Quarter: 2021Q2

REPORT INFORMATION
  Report Type: Report from Study
  Country: US (occurrence: US)
  Receive Date: 20210601
  Receipt Date: 20210615
  Transmission Date: 20210717
  Serious: Yes (Death)
  Sender: FDA-Public Use
  Company Number: US-PFIZER INC-2021614560

PATIENT
  Age: 62 Year
  Sex: Female
  Weight: 52.61 kg

DRUGS (2)
  1. PEMBROLIZUMAB. [Suspect]
     Active Substance: PEMBROLIZUMAB
     Indication: COLON CANCER
     Dosage: 200 MG, EVERY 21 DAYS
     Route: 042
     Dates: start: 20201008, end: 20210128
  2. BINIMETINIB [Suspect]
     Active Substance: BINIMETINIB
     Indication: COLON CANCER
     Dosage: 30 MG, DAILY
     Route: 048
     Dates: start: 20201001, end: 20210217

REACTIONS (1)
  - Neoplasm progression [Fatal]

NARRATIVE: CASE EVENT DATE: 20210513
